FAERS Safety Report 10166612 (Version 1)
Quarter: 2014Q2

REPORT INFORMATION
  Report Type: Spontaneous
  Country: FR (occurrence: FR)
  Receive Date: 20140512
  Receipt Date: 20140512
  Transmission Date: 20141212
  Serious: Yes (Hospitalization)
  Sender: FDA-Public Use
  Company Number: FR-JNJFOC-20140419926

PATIENT
  Age: 66 Year
  Sex: Female

DRUGS (7)
  1. RISPERDAL [Suspect]
     Indication: BIPOLAR DISORDER
     Route: 048
     Dates: start: 20140321, end: 20140321
  2. DEPAKOTE [Suspect]
     Indication: BIPOLAR DISORDER
     Route: 048
     Dates: start: 20140321, end: 20140321
  3. ALPRAZOLAM [Suspect]
     Indication: BIPOLAR DISORDER
     Route: 048
     Dates: start: 20140321, end: 20140321
  4. TERCIAN [Suspect]
     Indication: BIPOLAR DISORDER
     Route: 048
     Dates: start: 20140321, end: 20140321
  5. SEROPLEX [Suspect]
     Indication: BIPOLAR DISORDER
     Route: 048
     Dates: start: 20140321, end: 20140321
  6. LEPTICUR [Concomitant]
     Indication: PRODUCT USED FOR UNKNOWN INDICATION
     Dosage: 10 (UNITS UNSPECIFIED) ONCE A DAY
     Route: 065
  7. MIRTAZAPINE [Concomitant]
     Indication: PRODUCT USED FOR UNKNOWN INDICATION
     Dosage: 15 (UNITS UNSPECIFIED) ONCE A DAY
     Route: 065

REACTIONS (2)
  - Coma [Recovered/Resolved]
  - Prescribed overdose [Unknown]
